FAERS Safety Report 8359821-5 (Version None)
Quarter: 2012Q2

REPORT INFORMATION
  Report Type: 
  Country: None (occurrence: None)
  Receive Date: 20120515
  Receipt Date: 20120509
  Transmission Date: 20120825
  Serious: Yes (Other)
  Sender: FDA-Public Use
  Company Number: PHHY2011CA31362

PATIENT
  Sex: Female

DRUGS (3)
  1. SANDOSTATIN LAR [Suspect]
     Dosage: 30 MG, QMO
     Route: 030
  2. SANDOSTATIN LAR [Suspect]
     Dosage: 20 MG, BIW
     Route: 030
  3. SANDOSTATIN LAR [Suspect]
     Indication: CARCINOID TUMOUR
     Dosage: 20 MG, QMO
     Route: 030
     Dates: start: 20110411

REACTIONS (19)
  - PNEUMONIA [None]
  - INJECTION SITE HAEMATOMA [None]
  - INJECTION SITE ERYTHEMA [None]
  - INJECTION SITE PAIN [None]
  - DRUG ADMINISTRATION ERROR [None]
  - NAUSEA [None]
  - ABDOMINAL DISTENSION [None]
  - DIZZINESS [None]
  - INJECTION SITE HAEMORRHAGE [None]
  - BREAST MASS [None]
  - FLUSHING [None]
  - FATIGUE [None]
  - WHEEZING [None]
  - ABDOMINAL DISCOMFORT [None]
  - COUGH [None]
  - BREAST CALCIFICATIONS [None]
  - FREQUENT BOWEL MOVEMENTS [None]
  - BREAST CANCER [None]
  - DIARRHOEA [None]
